FAERS Safety Report 5763334-4 (Version None)
Quarter: 2008Q2

REPORT INFORMATION
  Report Type: 
  Country: None (occurrence: None)
  Receive Date: 20080609
  Receipt Date: 20080527
  Transmission Date: 20081010
  Serious: Yes (Other)
  Sender: FDA-Public Use
  Company Number: LB-ABBOTT-08P-093-0440067-00

PATIENT
  Age: 67 Year
  Sex: Male
  Weight: 70 kg

DRUGS (2)
  1. HUMIRA [Suspect]
     Indication: RHEUMATOID ARTHRITIS
     Route: 058
     Dates: start: 20060720
  2. PREDNISONE TAB [Concomitant]
     Indication: DRUG USE FOR UNKNOWN INDICATION

REACTIONS (10)
  - CHEST X-RAY ABNORMAL [None]
  - CORONARY ARTERY BYPASS [None]
  - ECHOCARDIOGRAM ABNORMAL [None]
  - EXTRAPULMONARY TUBERCULOSIS [None]
  - HYPOTHERMIA [None]
  - PLEURAL ADHESION [None]
  - PNEUMONIA [None]
  - TRICUSPID VALVE INCOMPETENCE [None]
  - TUBERCULOUS PLEURISY [None]
  - VENTRICULAR HYPERTROPHY [None]
